FAERS Safety Report 4541999-2 (Version None)
Quarter: 2004Q4

REPORT INFORMATION
  Report Type: 
  Country: None (occurrence: None)
  Receive Date: 20041227
  Receipt Date: 20041213
  Transmission Date: 20050328
  Serious: Yes (Other)
  Sender: FDA-Public Use
  Company Number: 2004098653

PATIENT
  Sex: Female

DRUGS (2)
  1. CELEBREX [Suspect]
     Indication: OSTEOARTHRITIS
     Dosage: (100 MG), ORAL
     Route: 048
  2. GABAPENTIN [Concomitant]

REACTIONS (2)
  - ARTHRITIS [None]
  - DRUG INEFFECTIVE [None]
